FAERS Safety Report 9354124 (Version 1)
Quarter: 2013Q2

REPORT INFORMATION
  Report Type: Spontaneous
  Country: US (occurrence: US)
  Receive Date: 20130618
  Receipt Date: 20130618
  Transmission Date: 20140414
  Serious: No
  Sender: FDA-Public Use
  Company Number: US-PFIZER INC-2013175900

PATIENT
  Sex: Male

DRUGS (4)
  1. TORISEL [Suspect]
     Dosage: UNK
  2. SOLU-MEDROL [Concomitant]
     Indication: PREMEDICATION
  3. ZANTAC [Concomitant]
     Indication: PREMEDICATION
  4. BENADRYL [Concomitant]
     Indication: PREMEDICATION

REACTIONS (1)
  - Infusion related reaction [Unknown]
